FAERS Safety Report 16672194 (Version 1)
Quarter: 2019Q3

REPORT INFORMATION
  Report Type: Spontaneous
  Country: SA (occurrence: SA)
  Receive Date: 20190806
  Receipt Date: 20190806
  Transmission Date: 20191004
  Serious: No
  Sender: FDA-Public Use
  Company Number: SA-LUPIN PHARMACEUTICALS INC.-2018-06320

PATIENT
  Age: 3 Year
  Sex: Male

DRUGS (4)
  1. IMMUNOGLOBULIN                     /00025201/ [Concomitant]
     Active Substance: HUMAN IMMUNOGLOBULIN G
     Indication: ACUTE DISSEMINATED ENCEPHALOMYELITIS
     Dosage: 2 G/KG, SECOND COURSE OVER 5 DAYS
     Route: 042
     Dates: start: 20151224
  2. CYCLOPHOSPHAMIDE. [Concomitant]
     Active Substance: CYCLOPHOSPHAMIDE
     Indication: ACUTE DISSEMINATED ENCEPHALOMYELITIS
     Dosage: 750 MG/M2, UNK, 1 DOSE ; IN TOTAL
     Route: 065
     Dates: start: 20151231
  3. METHYLPREDNISOLONE. [Suspect]
     Active Substance: METHYLPREDNISOLONE
     Indication: ACUTE DISSEMINATED ENCEPHALOMYELITIS
     Dosage: 30 MG/KG, QD
     Route: 065
     Dates: start: 20151204, end: 20151209
  4. LEVETIRACETAM. [Suspect]
     Active Substance: LEVETIRACETAM
     Indication: TONIC CONVULSION
     Dosage: UNK
     Route: 065
     Dates: start: 20151206

REACTIONS (1)
  - Irritability [Recovered/Resolved]

NARRATIVE: CASE EVENT DATE: 20160329
